FAERS Safety Report 14827525 (Version 1)
Quarter: 2018Q2

REPORT INFORMATION
  Report Type: Spontaneous
  Country: US (occurrence: US)
  Receive Date: 20180405
  Receipt Date: 20180405
  Transmission Date: 20180711
  Serious: Yes (Life-Threatening)
  Sender: FDA-Public Use
  Company Number: None

PATIENT
  Age: 43 Year
  Sex: Female
  Weight: 70.65 kg

DRUGS (10)
  1. AMLODIPINE [Concomitant]
     Active Substance: AMLODIPINE BESYLATE
  2. MULTIVITAMIN [Concomitant]
     Active Substance: VITAMINS
  3. BIOTE PELLET [Concomitant]
  4. PROGESTERONE. [Suspect]
     Active Substance: PROGESTERONE
     Indication: MENOPAUSE
     Dosage: ?          QUANTITY:1 CAPSULE(S);?AT BEDTIME
     Route: 048
     Dates: start: 20180404, end: 20180405
  5. PROGESTERONE. [Concomitant]
     Active Substance: PROGESTERONE
  6. HCTZ [Concomitant]
     Active Substance: HYDROCHLOROTHIAZIDE
  7. DIM [Concomitant]
  8. LISINOPRIL. [Concomitant]
     Active Substance: LISINOPRIL
  9. ATORVASTIN [Concomitant]
     Active Substance: ATORVASTATIN
  10. VITAMIN D [Concomitant]
     Active Substance: CHOLECALCIFEROL

REACTIONS (5)
  - Urticaria [None]
  - Throat tightness [None]
  - Reaction to excipient [None]
  - Erythema [None]
  - Swelling face [None]

NARRATIVE: CASE EVENT DATE: 20180405
